FAERS Safety Report 17006146 (Version 1)
Quarter: 2019Q4

REPORT INFORMATION
  Report Type: Spontaneous
  Country: US (occurrence: US)
  Receive Date: 20191107
  Receipt Date: 20191107
  Transmission Date: 20200122
  Serious: Yes (Hospitalization)
  Sender: FDA-Public Use
  Company Number: US-ENDO PHARMACEUTICALS INC-2019-109413

PATIENT
  Age: 23 Year
  Sex: Female

DRUGS (8)
  1. VASOSTRICT [Suspect]
     Active Substance: VASOPRESSIN
     Dosage: 50 ML, QH
     Route: 065
  2. HYPERTONIC SALINE SOLUTION [Concomitant]
     Active Substance: SODIUM CHLORIDE
     Indication: HYPONATRAEMIA
     Dosage: 50 ML, QH
     Route: 065
  3. PHENYLEPHRINE                      /00116302/ [Concomitant]
     Active Substance: PHENYLEPHRINE HYDROCHLORIDE
     Indication: CEREBRAL HYPOPERFUSION
     Dosage: UNK UNKNOWN, UNKNOWN
     Route: 065
  4. DEMECLOCYCLINE [Concomitant]
     Active Substance: DEMECLOCYCLINE
     Indication: HYPONATRAEMIA
     Dosage: UNK UNKNOWN, UNKNOWN
     Route: 065
  5. VASOSTRICT [Suspect]
     Active Substance: VASOPRESSIN
     Indication: CEREBRAL HYPOPERFUSION
     Dosage: 50 ML, QH
     Route: 065
  6. VASOSTRICT [Suspect]
     Active Substance: VASOPRESSIN
     Dosage: 30 ML, QH
     Route: 065
  7. NOREPINEPHRINE. [Concomitant]
     Active Substance: NOREPINEPHRINE
     Indication: CEREBRAL HYPOPERFUSION
     Dosage: UNK UNKNOWN, UNKNOWN
     Route: 065
  8. BARBITURATES, PLAIN [Concomitant]
     Active Substance: UNSPECIFIED INGREDIENT
     Indication: COMA
     Dosage: UNK UNKNOWN, UNKNOWN
     Route: 065

REACTIONS (1)
  - Diabetes insipidus [Recovered/Resolved]
